FAERS Safety Report 4767348-2 (Version None)
Quarter: 2005Q3

REPORT INFORMATION
  Report Type: 
  Country: None (occurrence: None)
  Receive Date: 20050913
  Receipt Date: 20050225
  Transmission Date: 20060218
  Serious: Yes (Hospitalization)
  Sender: FDA-Public Use
  Company Number: FR-GILEAD-2005-0008098

PATIENT
  Sex: Female

DRUGS (6)
  1. VIREAD [Suspect]
     Route: 064
  2. EPIVIR [Suspect]
     Route: 064
  3. EPIVIR [Suspect]
  4. NORVIR [Suspect]
     Route: 064
  5. AGENERASE [Suspect]
     Route: 064
  6. RETROVIR [Suspect]
     Route: 042
     Dates: start: 20041031, end: 20041031

REACTIONS (8)
  - BLOOD CREATINE PHOSPHOKINASE INCREASED [None]
  - BLOOD LACTIC ACID INCREASED [None]
  - CSF PROTEIN INCREASED [None]
  - DRUG EXPOSURE DURING PREGNANCY [None]
  - DYSKINESIA [None]
  - EYE DISORDER [None]
  - EYE MOVEMENT DISORDER [None]
  - NYSTAGMUS [None]
